FAERS Safety Report 23982736 (Version 1)
Quarter: 2024Q2

REPORT INFORMATION
  Report Type: Spontaneous
  Country: US (occurrence: None)
  Receive Date: 20240617
  Receipt Date: 20240617
  Transmission Date: 20240716
  Serious: No
  Sender: FDA-Public Use
  Company Number: None

PATIENT
  Age: 84 Year
  Sex: Male
  Weight: 85.5 kg

DRUGS (7)
  1. LINZESS [Suspect]
     Active Substance: LINACLOTIDE
     Indication: Constipation
     Dosage: OTHER QUANTITY : 1 CAPSULE(S);?FREQUENCY : DAILY;?
     Route: 048
  2. DILTIAZEM [Concomitant]
     Active Substance: DILTIAZEM
  3. ELIQUIS [Concomitant]
     Active Substance: APIXABAN
  4. CIMERLI [Concomitant]
     Active Substance: RANIBIZUMAB-EQRN
  5. LEVOCETIRIZINE [Concomitant]
     Active Substance: LEVOCETIRIZINE
  6. LEUTINE [Concomitant]
  7. VITAMIN D3 [Concomitant]
     Active Substance: CHOLECALCIFEROL

REACTIONS (1)
  - Pruritus [None]

NARRATIVE: CASE EVENT DATE: 20240526
